FAERS Safety Report 24854231 (Version 2)
Quarter: 2025Q1

REPORT INFORMATION
  Report Type: Spontaneous
  Country: NL (occurrence: NL)
  Receive Date: 20250117
  Receipt Date: 20250122
  Transmission Date: 20250409
  Serious: No
  Sender: ASTELLAS
  Company Number: NL-ASTELLAS-2025-AER-002375

PATIENT
  Age: 58 Year
  Sex: Female

DRUGS (2)
  1. VEOZAH [Suspect]
     Active Substance: FEZOLINETANT
     Indication: Menopausal symptoms
     Route: 065
     Dates: start: 202407
  2. VEOZAH [Suspect]
     Active Substance: FEZOLINETANT
     Route: 065
     Dates: start: 20250101

REACTIONS (5)
  - Blood triglycerides increased [Unknown]
  - Alanine aminotransferase increased [Unknown]
  - Low density lipoprotein increased [Unknown]
  - Sex hormone binding globulin decreased [Unknown]
  - Inappropriate schedule of product administration [Unknown]

NARRATIVE: CASE EVENT DATE: 20241212
